FAERS Safety Report 22644068 (Version 1)
Quarter: 2023Q2

REPORT INFORMATION
  Report Type: Spontaneous
  Country: US (occurrence: US)
  Receive Date: 20230627
  Receipt Date: 20230627
  Transmission Date: 20230721
  Serious: No
  Sender: FDA-Public Use
  Company Number: US-APOTEX-2023AP004523

PATIENT
  Sex: Female

DRUGS (1)
  1. ATORVASTATIN [Suspect]
     Active Substance: ATORVASTATIN
     Indication: Product used for unknown indication
     Dosage: 1 DOSAGE FORM, QD
     Route: 065
     Dates: start: 20230225, end: 202302

REACTIONS (4)
  - Pharyngeal swelling [Unknown]
  - Oropharyngeal pain [Unknown]
  - Feeding disorder [Unknown]
  - Reaction to excipient [Unknown]

NARRATIVE: CASE EVENT DATE: 20230201
